FAERS Safety Report 6442879-8 (Version None)
Quarter: 2009Q4

REPORT INFORMATION
  Report Type: 
  Country: None (occurrence: None)
  Receive Date: 20091117
  Receipt Date: 20091028
  Transmission Date: 20100525
  Serious: Yes (Other)
  Sender: FDA-Public Use
  Company Number: FR-WATSON-2009-09145

PATIENT
  Age: 46 Year
  Sex: Female

DRUGS (1)
  1. FENTANYL-25 [Suspect]
     Indication: PAIN
     Dosage: 12 MCG, SINGLE
     Route: 062

REACTIONS (1)
  - ANAPHYLACTIC REACTION [None]
